FAERS Safety Report 5325015-0 (Version None)
Quarter: 2007Q2

REPORT INFORMATION
  Report Type: 
  Country: None (occurrence: None)
  Receive Date: 20070511
  Receipt Date: 20070511
  Transmission Date: 20071010
  Serious: No
  Sender: FDA-Public Use
  Company Number: None

PATIENT
  Sex: Female
  Weight: 59.78 kg

DRUGS (2)
  1. CISPLATIN [Suspect]
     Dosage: 79 MG
  2. TOPOTECAN [Suspect]
     Dosage: 3.555 MG (1,185 MG ON DAYS 1, 2, + 3

REACTIONS (2)
  - NEUTROPHIL COUNT DECREASED [None]
  - WHITE BLOOD CELL COUNT DECREASED [None]
